FAERS Safety Report 7042768-4 (Version None)
Quarter: 2010Q4

REPORT INFORMATION
  Report Type: 
  Country: None (occurrence: None)
  Receive Date: 20101013
  Receipt Date: 20100126
  Transmission Date: 20110411
  Serious: No
  Sender: FDA-Public Use
  Company Number: US-ASTRAZENECA-2009SE28969

PATIENT
  Age: 72 Year
  Sex: Female
  Weight: 50.8 kg

DRUGS (9)
  1. SYMBICORT [Suspect]
     Indication: CHRONIC OBSTRUCTIVE PULMONARY DISEASE
     Dosage: 80/4.5, TWO PUFFS
     Route: 055
     Dates: start: 20091124, end: 20091125
  2. ZOFRAN [Concomitant]
     Dosage: 4 MG, Q4-6H
  3. BENTYL [Concomitant]
  4. SINGULAIR [Concomitant]
     Indication: ASTHMA
  5. ALBUTEROL [Concomitant]
  6. NEXIUM [Concomitant]
  7. PROBIOTIC [Concomitant]
  8. KLONOPIN [Concomitant]
  9. NAPROXEN [Concomitant]
     Dosage: PRN

REACTIONS (6)
  - DYSPNOEA [None]
  - FEELING ABNORMAL [None]
  - FEELING JITTERY [None]
  - HEADACHE [None]
  - NERVOUSNESS [None]
  - TREMOR [None]
